FAERS Safety Report 8534222-5 (Version None)
Quarter: 2012Q3

REPORT INFORMATION
  Report Type: 
  Country: None (occurrence: None)
  Receive Date: 20120724
  Receipt Date: 20120720
  Transmission Date: 20120928
  Serious: No
  Sender: FDA-Public Use
  Company Number: US-BAYER-2012-073814

PATIENT
  Age: 23 Year
  Sex: Male
  Weight: 73.923 kg

DRUGS (1)
  1. ULTRAVIST 150 [Suspect]
     Indication: COMPUTERISED TOMOGRAM
     Dosage: 100 ML, ONCE (3 ML/S)
     Route: 042
     Dates: start: 20120717

REACTIONS (4)
  - LIP PRURITUS [None]
  - FEELING HOT [None]
  - FLUSHING [None]
  - URTICARIA [None]
